FAERS Safety Report 21053926 (Version 1)
Quarter: 2022Q3

REPORT INFORMATION
  Report Type: Spontaneous
  Country: US (occurrence: US)
  Receive Date: 20220707
  Receipt Date: 20220707
  Transmission Date: 20221026
  Serious: Yes (Other)
  Sender: FDA-Public Use
  Company Number: US-MODERNATX, INC.-MOD-2022-597883

PATIENT
  Age: 74 Year
  Sex: Female

DRUGS (7)
  1. MODERNA COVID-19 VACCINE [Suspect]
     Active Substance: ELASOMERAN
     Indication: COVID-19 immunisation
     Dosage: 1 DOSAGE FORM
     Route: 030
     Dates: start: 20211030
  2. HUMIRA [Suspect]
     Active Substance: ADALIMUMAB
     Indication: Crohn^s disease
     Dosage: 1 DOSAGE FORM, CITRATE FREE, 40MG/0.4ML PRE FILLED SYRINGE
     Route: 058
  3. HUMIRA [Suspect]
     Active Substance: ADALIMUMAB
     Dosage: 1 DOSAGE FORM, CITRATE FREE
     Route: 058
  4. HUMIRA [Suspect]
     Active Substance: ADALIMUMAB
     Dosage: 1 DOSAGE FORM, CITRATE FREE
     Route: 058
  5. HUMIRA [Suspect]
     Active Substance: ADALIMUMAB
     Dosage: 40 MILLIGRAM, Q2WK, CITRATE FREE
     Route: 058
     Dates: start: 202102
  6. ENTYVIO [Suspect]
     Active Substance: VEDOLIZUMAB
     Indication: Product used for unknown indication
     Dosage: 1 DOSAGE FORM
     Route: 065
  7. CANASA [Concomitant]
     Active Substance: MESALAMINE
     Indication: Product used for unknown indication
     Dosage: UNK
     Route: 065

REACTIONS (21)
  - Cataract [Not Recovered/Not Resolved]
  - Dysphonia [Not Recovered/Not Resolved]
  - Increased upper airway secretion [Not Recovered/Not Resolved]
  - Exostosis [Not Recovered/Not Resolved]
  - Cough [Not Recovered/Not Resolved]
  - Rosacea [Not Recovered/Not Resolved]
  - Vaccination site warmth [Recovered/Resolved]
  - Constipation [Unknown]
  - Ocular discomfort [Unknown]
  - Pain [Unknown]
  - Asthenia [Unknown]
  - Pruritus [Unknown]
  - Diarrhoea [Unknown]
  - Paraesthesia [Not Recovered/Not Resolved]
  - Vaccination site pruritus [Recovered/Resolved]
  - Vaccination site erythema [Recovered/Resolved]
  - Arthralgia [Not Recovered/Not Resolved]
  - Fatigue [Unknown]
  - Hypersensitivity [Unknown]
  - Urticaria [Recovering/Resolving]
  - Vaccination site swelling [Recovered/Resolved]

NARRATIVE: CASE EVENT DATE: 20210101
